FAERS Safety Report 8643630 (Version 2)
Quarter: 2013Q1

REPORT INFORMATION
  Report Type: Spontaneous
  Country: US (occurrence: US)
  Receive Date: 20120629
  Receipt Date: 20130313
  Transmission Date: 20140127
  Serious: Yes (Congenital Anomaly, Other)
  Sender: FDA-Public Use
  Company Number: US-PFIZER INC-2012153875

PATIENT
  Sex: Female

DRUGS (3)
  1. ZOLOFT [Suspect]
     Dosage: UNK
     Route: 064
     Dates: start: 201006, end: 2011
  2. TYLENOL [Concomitant]
     Dosage: UNK
     Route: 064
  3. PRENATAL VITAMINS [Concomitant]
     Dosage: UNK
     Route: 064

REACTIONS (2)
  - Maternal exposure timing unspecified [Not Recovered/Not Resolved]
  - Talipes [Not Recovered/Not Resolved]
